FAERS Safety Report 8223056-7 (Version None)
Quarter: 2012Q1

REPORT INFORMATION
  Report Type: 
  Country: None (occurrence: None)
  Receive Date: 20120321
  Receipt Date: 20120312
  Transmission Date: 20120608
  Serious: Yes (Hospitalization, Other)
  Sender: FDA-Public Use
  Company Number: US-ASTRAZENECA-2011SE32265

PATIENT
  Age: 62 Year
  Sex: Female

DRUGS (17)
  1. PREVENTATIVE MAZALT [Concomitant]
     Indication: MIGRAINE
  2. NEXIUM [Suspect]
     Route: 048
     Dates: start: 20010101, end: 20110501
  3. PEPCID [Concomitant]
     Indication: GASTROOESOPHAGEAL REFLUX DISEASE
     Dates: start: 20110501
  4. PROPRANOLOL [Concomitant]
     Indication: MIGRAINE
  5. VITAMIN D [Concomitant]
     Indication: OSTEOPOROSIS
  6. NEXIUM [Suspect]
     Indication: GASTROOESOPHAGEAL REFLUX DISEASE
     Dosage: TOOK NEXIUM FOR SEVERAL YEARS
     Route: 048
  7. LEXAPRO [Concomitant]
     Indication: DEPRESSION
  8. LEVOTHYROXINE SODIUM [Concomitant]
     Indication: HYPOTHYROIDISM
  9. CALCIUM CARBONATE [Concomitant]
     Indication: OSTEOPOROSIS
  10. ENABLEX [Concomitant]
     Indication: URINARY INCONTINENCE
  11. FLORINAL [Concomitant]
     Indication: HYPERTENSION
  12. DAPSONE [Concomitant]
     Indication: VASCULITIS
  13. CARBEMAZEPIN [Concomitant]
     Indication: TRIGEMINAL NEURALGIA
  14. LOVASTATIN [Concomitant]
     Indication: BLOOD CHOLESTEROL INCREASED
  15. RECLAST [Concomitant]
     Indication: OSTEOPOROSIS
  16. ASATHIOPRINE [Concomitant]
     Indication: VASCULITIS
  17. BENICAR HCT [Concomitant]
     Indication: HYPERTENSION

REACTIONS (12)
  - OSTEOPOROSIS [None]
  - HYPOTHYROIDISM [None]
  - OESOPHAGEAL SPASM [None]
  - TIBIA FRACTURE [None]
  - UPPER LIMB FRACTURE [None]
  - FEMUR FRACTURE [None]
  - LOWER LIMB FRACTURE [None]
  - FOREARM FRACTURE [None]
  - WRIST FRACTURE [None]
  - SPINAL OSTEOARTHRITIS [None]
  - SPINAL COLUMN STENOSIS [None]
  - DEPRESSION [None]
